FAERS Safety Report 9254949 (Version 2)
Quarter: 2013Q2

REPORT INFORMATION
  Report Type: Spontaneous
  Country: JP (occurrence: JP)
  Receive Date: 20130425
  Receipt Date: 20130509
  Transmission Date: 20140414
  Serious: Yes (Other)
  Sender: FDA-Public Use
  Company Number: JP-JNJFOC-20130411928

PATIENT
  Age: 70 Year
  Sex: Female

DRUGS (5)
  1. TRAMCET [Suspect]
     Indication: PAIN
     Dosage: 3 DOSES 1 PER 1 DAY
     Route: 048
     Dates: start: 20130318, end: 20130402
  2. CAFFEINE ANHYDROUS/DIHYDROCODEINE TARTATE [Suspect]
     Indication: PRODUCT USED FOR UNKNOWN INDICATION
     Route: 048
  3. OPALMON [Concomitant]
     Route: 048
  4. LOXONIN [Concomitant]
     Route: 065
  5. YAKUBAN [Concomitant]
     Route: 062

REACTIONS (1)
  - Loss of consciousness [Recovered/Resolved]
